FAERS Safety Report 13383289 (Version 2)
Quarter: 2017Q2

REPORT INFORMATION
  Report Type: Spontaneous
  Country: US (occurrence: US)
  Receive Date: 20170329
  Receipt Date: 20170421
  Transmission Date: 20170830
  Serious: Yes (Other)
  Sender: FDA-Public Use
  Company Number: PHEH2017US008573

PATIENT

DRUGS (1)
  1. GLEEVEC [Suspect]
     Active Substance: IMATINIB MESYLATE
     Indication: DERMATOFIBROSARCOMA PROTUBERANS
     Dosage: 400 MG, QD
     Route: 065

REACTIONS (2)
  - Dermatofibrosarcoma protuberans [Unknown]
  - Malignant neoplasm progression [Unknown]
